FAERS Safety Report 23569149 (Version 3)
Quarter: 2025Q1

REPORT INFORMATION
  Report Type: Spontaneous
  Country: BR (occurrence: BR)
  Receive Date: 20240227
  Receipt Date: 20250213
  Transmission Date: 20250409
  Serious: Yes (Other)
  Sender: CELLTRION
  Company Number: BR-CELLTRION INC.-2023BR001380

PATIENT

DRUGS (5)
  1. INFLIXIMAB [Suspect]
     Active Substance: INFLIXIMAB
     Indication: Crohn^s disease
     Route: 042
     Dates: start: 20230828
  2. INFLIXIMAB [Suspect]
     Active Substance: INFLIXIMAB
     Dosage: 3 AMPOULES (300 MG-100MG PER AMPOULE) EVERY 4 WEEKS
     Route: 042
     Dates: start: 20220909, end: 20240221
  3. CALCIUM [Concomitant]
     Active Substance: CALCIUM
     Route: 048
     Dates: start: 202208
  4. VITAMIN D NOS [Concomitant]
     Active Substance: CHOLECALCIFEROL\ERGOCALCIFEROL
  5. SULFASALAZINE [Concomitant]
     Active Substance: SULFASALAZINE

REACTIONS (18)
  - Crohn^s disease [Unknown]
  - Erythema nodosum [Not Recovered/Not Resolved]
  - Flatulence [Recovered/Resolved]
  - Infrequent bowel movements [Not Recovered/Not Resolved]
  - Abdominal discomfort [Not Recovered/Not Resolved]
  - Bone pain [Recovered/Resolved]
  - Weight increased [Recovered/Resolved]
  - Abdominal distension [Not Recovered/Not Resolved]
  - Pain in extremity [Not Recovered/Not Resolved]
  - Muscle spasms [Not Recovered/Not Resolved]
  - Abdominal pain [Recovered/Resolved]
  - Constipation [Not Recovered/Not Resolved]
  - Headache [Recovered/Resolved]
  - Nausea [Recovered/Resolved]
  - Viral infection [Recovered/Resolved]
  - Intentional product use issue [Unknown]
  - Intentional dose omission [Unknown]
  - Overdose [Unknown]

NARRATIVE: CASE EVENT DATE: 20220801
